FAERS Safety Report 18737051 (Version 1)
Quarter: 2021Q1

REPORT INFORMATION
  Report Type: Spontaneous
  Country: US (occurrence: US)
  Receive Date: 20210113
  Receipt Date: 20210113
  Transmission Date: 20210419
  Serious: Yes (Other)
  Sender: FDA-Public Use
  Company Number: US-AMERICAN REGENT INC-2021000043

PATIENT
  Sex: Male

DRUGS (10)
  1. FUROSEMIDE INJECTION, USP (5702?25) [Concomitant]
     Active Substance: FUROSEMIDE
     Indication: ACUTE KIDNEY INJURY
  2. CALCITONIN [Concomitant]
     Active Substance: CALCITONIN
     Indication: HYPERCALCAEMIA
     Dosage: UNK
     Route: 065
  3. CALCITONIN [Concomitant]
     Active Substance: CALCITONIN
     Indication: ACUTE KIDNEY INJURY
  4. PAMIDRONATE DISODIUM INJECTION (0745?01) [Suspect]
     Active Substance: PAMIDRONATE DISODIUM
     Indication: HYPERCALCAEMIA
     Dosage: UNK
     Route: 042
  5. FUROSEMIDE INJECTION, USP (5702?25) [Concomitant]
     Active Substance: FUROSEMIDE
     Indication: HYPERCALCAEMIA
     Dosage: UNK
     Route: 065
  6. CALCITONIN [Concomitant]
     Active Substance: CALCITONIN
     Indication: BLOOD 1,25-DIHYDROXYCHOLECALCIFEROL INCREASED
  7. FUROSEMIDE INJECTION, USP (5702?25) [Concomitant]
     Active Substance: FUROSEMIDE
     Indication: HYPOPHOSPHATAEMIA
  8. PAMIDRONATE DISODIUM INJECTION (0745?01) [Suspect]
     Active Substance: PAMIDRONATE DISODIUM
     Dosage: UNK
     Route: 042
  9. FUROSEMIDE INJECTION, USP (5702?25) [Concomitant]
     Active Substance: FUROSEMIDE
     Indication: BLOOD 1,25-DIHYDROXYCHOLECALCIFEROL INCREASED
  10. CALCITONIN [Concomitant]
     Active Substance: CALCITONIN
     Indication: HYPOPHOSPHATAEMIA

REACTIONS (3)
  - Hypophosphataemia [Recovered/Resolved]
  - Condition aggravated [Recovered/Resolved]
  - Product use issue [Unknown]
